FAERS Safety Report 5846607-6 (Version None)
Quarter: 2008Q3

REPORT INFORMATION
  Report Type: 
  Country: None (occurrence: None)
  Receive Date: 20080815
  Receipt Date: 20080811
  Transmission Date: 20090109
  Serious: Yes (Other)
  Sender: FDA-Public Use
  Company Number: US-TEVA-175758USA

PATIENT
  Age: 19 Month
  Sex: Female

DRUGS (14)
  1. LEFLUNOMIDE,TABLETS 10 MG [Suspect]
     Indication: JUVENILE ARTHRITIS
  2. NAPROXEN [Suspect]
     Indication: JUVENILE ARTHRITIS
  3. CORTICOSTEROIDS [Suspect]
     Indication: JUVENILE ARTHRITIS
  4. IBUPROFEN [Suspect]
     Indication: JUVENILE ARTHRITIS
  5. METHOTREXATE [Suspect]
     Indication: JUVENILE ARTHRITIS
  6. ETANERCEPT [Suspect]
     Indication: JUVENILE ARTHRITIS
  7. INFLIXIMAB [Suspect]
     Indication: JUVENILE ARTHRITIS
     Dosage: 3 MG/KG
  8. KINERET [Suspect]
     Indication: JUVENILE ARTHRITIS
  9. CYCLOPHOSPHAMIDE [Suspect]
     Indication: JUVENILE ARTHRITIS
  10. RITUXIMAB [Suspect]
     Indication: JUVENILE ARTHRITIS
  11. THALIDOMIDE [Suspect]
     Indication: JUVENILE ARTHRITIS
  12. PREDNISONE TAB [Suspect]
     Indication: JUVENILE ARTHRITIS
  13. METHADONE HCL [Suspect]
     Indication: JUVENILE ARTHRITIS
  14. ADALIMUMAB [Suspect]
     Indication: JUVENILE ARTHRITIS
     Dosage: 1 MG/KG

REACTIONS (1)
  - HODGKIN'S DISEASE STAGE II [None]
